FAERS Safety Report 15317201 (Version 1)
Quarter: 2018Q3

REPORT INFORMATION
  Report Type: Spontaneous
  Country: US (occurrence: US)
  Receive Date: 20180824
  Receipt Date: 20180824
  Transmission Date: 20181010
  Serious: No
  Sender: FDA-Public Use
  Company Number: US-JNJFOC-20180721148

PATIENT
  Sex: Male
  Weight: 127.01 kg

DRUGS (1)
  1. TREMFYA [Suspect]
     Active Substance: GUSELKUMAB
     Indication: PSORIASIS
     Dosage: 57894?640?01??NDC / UDI /??SERIAL # /??PRESCRIPTION??NUMBER
     Route: 058
     Dates: start: 201806

REACTIONS (1)
  - Tooth infection [Unknown]
